FAERS Safety Report 26016538 (Version 2)
Quarter: 2025Q4

REPORT INFORMATION
  Report Type: Spontaneous
  Country: US (occurrence: US)
  Receive Date: 20251110
  Receipt Date: 20251202
  Transmission Date: 20260118
  Serious: Yes (Hospitalization, Other)
  Sender: SANOFI AVENTIS
  Company Number: US-SA-2025SA331733

PATIENT
  Age: 35 Year
  Sex: Female
  Weight: 88.889 kg

DRUGS (1)
  1. DUPIXENT [Suspect]
     Active Substance: DUPILUMAB
     Indication: Dermatitis atopic
     Dosage: 300 MG, QOW
     Route: 058

REACTIONS (6)
  - Dyspnoea [Unknown]
  - Hypervolaemia [Unknown]
  - Pneumonia [Unknown]
  - Fluid retention [Unknown]
  - Weight fluctuation [Recovered/Resolved]
  - Pleural effusion [Unknown]

NARRATIVE: CASE EVENT DATE: 20251102
